FAERS Safety Report 9551605 (Version 1)
Quarter: 2013Q3

REPORT INFORMATION
  Report Type: Spontaneous
  Country: US (occurrence: None)
  Receive Date: 20130724
  Receipt Date: 20130724
  Transmission Date: 20140515
  Serious: No
  Sender: FDA-Public Use
  Company Number: PHEH2012US012133

PATIENT
  Sex: Male

DRUGS (1)
  1. DIOVAN HCT (VALSARTAN, HYDROCHLOROTHIAZIDE) UNKNOWN [Suspect]
     Dosage: 160 MG OF VALS AND 25 MG OF HYDRO

REACTIONS (1)
  - Blood pressure diastolic decreased [None]
